FAERS Safety Report 4765997-9 (Version None)
Quarter: 2005Q3

REPORT INFORMATION
  Report Type: 
  Country: None (occurrence: None)
  Receive Date: 20050912
  Receipt Date: 20050901
  Transmission Date: 20060218
  Serious: Yes (Other)
  Sender: FDA-Public Use
  Company Number: BR-GLAXOSMITHKLINE-A0573360A

PATIENT
  Age: 3 Month
  Sex: Male
  Weight: 5 kg

DRUGS (2)
  1. AMOXIL [Suspect]
     Indication: BRONCHIOLITIS
     Route: 048
     Dates: start: 20050820
  2. COLECALCIFEROL [Concomitant]
     Dates: start: 20050526

REACTIONS (2)
  - DIARRHOEA [None]
  - DIARRHOEA HAEMORRHAGIC [None]
